FAERS Safety Report 11825136 (Version 1)
Quarter: 2015Q4

REPORT INFORMATION
  Report Type: Spontaneous
  Country: FR (occurrence: FR)
  Receive Date: 20151211
  Receipt Date: 20151211
  Transmission Date: 20160305
  Serious: Yes (Hospitalization)
  Sender: FDA-Public Use
  Company Number: FR-ROCHE-1675238

PATIENT
  Age: 65 Year
  Sex: Male

DRUGS (21)
  1. VANCOMYCINE [Suspect]
     Active Substance: VANCOMYCIN
     Indication: INFLAMMATION
     Route: 065
     Dates: start: 20150619, end: 20150702
  2. OFLOCET [Suspect]
     Active Substance: OFLOXACIN
     Indication: INFLAMMATION
  3. NARCAN [Suspect]
     Active Substance: NALOXONE HYDROCHLORIDE
     Indication: DISTURBANCE IN ATTENTION
     Route: 042
     Dates: start: 20150707, end: 20150707
  4. TRAMADOL. [Concomitant]
     Active Substance: TRAMADOL
     Route: 065
  5. LANTUS [Concomitant]
     Active Substance: INSULIN GLARGINE
     Route: 065
  6. CLOPIDOGREL [Concomitant]
     Active Substance: CLOPIDOGREL BISULFATE
     Route: 065
  7. AMLODIPINE [Concomitant]
     Active Substance: AMLODIPINE BESYLATE
     Route: 065
  8. VANCOMYCINE [Suspect]
     Active Substance: VANCOMYCIN
     Indication: PYREXIA
     Route: 065
     Dates: start: 20150606, end: 20150615
  9. VANCOMYCINE [Suspect]
     Active Substance: VANCOMYCIN
     Route: 042
     Dates: start: 20150708, end: 20150709
  10. GENTAMICINE [Concomitant]
     Active Substance: GENTAMICIN
     Indication: OSTEITIS
     Route: 065
     Dates: start: 20150602, end: 20150606
  11. ACEBUTOLOL [Concomitant]
     Active Substance: ACEBUTOLOL
     Route: 065
  12. GLICLAZIDE [Concomitant]
     Active Substance: GLICLAZIDE
     Route: 065
  13. FRESUBIN [Concomitant]
     Active Substance: AMINO ACIDS\DEXTROSE\ELECTROLYTES NOS\SOYBEAN OIL\VITAMINS
     Route: 065
  14. OFLOCET [Suspect]
     Active Substance: OFLOXACIN
     Indication: OSTEITIS
     Route: 065
     Dates: start: 201503
  15. OFLOCET [Suspect]
     Active Substance: OFLOXACIN
     Indication: PYREXIA
     Route: 065
     Dates: start: 20150708, end: 20150709
  16. METFORMINE [Concomitant]
     Active Substance: METFORMIN HYDROCHLORIDE
     Route: 065
  17. VANCOMYCINE [Suspect]
     Active Substance: VANCOMYCIN
     Indication: OSTEITIS
     Route: 065
     Dates: start: 20150602, end: 20150606
  18. PERINDOPRIL [Concomitant]
     Active Substance: PERINDOPRIL
     Route: 065
  19. RIVOTRIL [Suspect]
     Active Substance: CLONAZEPAM
     Indication: DISTURBANCE IN ATTENTION
     Route: 065
     Dates: start: 20150707, end: 20150707
  20. ATORVASTATINE [Concomitant]
     Active Substance: ATORVASTATIN
     Route: 065
  21. OMEPRAZOLE. [Concomitant]
     Active Substance: OMEPRAZOLE
     Route: 065

REACTIONS (1)
  - Drug reaction with eosinophilia and systemic symptoms [Recovered/Resolved]

NARRATIVE: CASE EVENT DATE: 20150707
